FAERS Safety Report 14878800 (Version 2)
Quarter: 2018Q2

REPORT INFORMATION
  Report Type: Spontaneous
  Country: US (occurrence: US)
  Receive Date: 20180511
  Receipt Date: 20180518
  Transmission Date: 20180711
  Serious: No
  Sender: FDA-Public Use
  Company Number: US-CELGENEUS-USA-20180501826

PATIENT
  Age: 70 Year
  Sex: Female

DRUGS (2)
  1. OTEZLA [Suspect]
     Active Substance: APREMILAST
     Indication: PSORIASIS
     Dosage: 60 MILLIGRAM
     Route: 048
     Dates: start: 20170701
  2. OTEZLA [Suspect]
     Active Substance: APREMILAST
     Dosage: 30 MILLIGRAM
     Route: 048
     Dates: end: 20180411

REACTIONS (5)
  - Psoriasis [Not Recovered/Not Resolved]
  - Insomnia [Not Recovered/Not Resolved]
  - Pain [Not Recovered/Not Resolved]
  - Diarrhoea [Recovered/Resolved]
  - Drug dose omission [Unknown]

NARRATIVE: CASE EVENT DATE: 2017
